FAERS Safety Report 7625157-0 (Version None)
Quarter: 2011Q3

REPORT INFORMATION
  Report Type: 
  Country: None (occurrence: None)
  Receive Date: 20110712
  Receipt Date: 20110628
  Transmission Date: 20111222
  Serious: Yes (Hospitalization, Other)
  Sender: FDA-Public Use
  Company Number: 2011P1007374

PATIENT
  Sex: Female

DRUGS (9)
  1. FENTANYL CITRATE [Suspect]
     Indication: SPINAL COLUMN STENOSIS
     Dosage: 100 MCG/HR, Q72H, TDER
     Route: 062
  2. FENTANYL CITRATE [Suspect]
     Indication: ARTHRITIS
     Dosage: 100 MCG/HR, Q72H, TDER
     Route: 062
  3. FENTANYL CITRATE [Suspect]
     Indication: PAIN
     Dosage: 100 MCG/HR, Q72H, TDER
     Route: 062
  4. FENTANYL-25 [Suspect]
     Indication: ARTHRITIS
     Dosage: 25 MCG/HR Q72H,TDER
     Route: 062
     Dates: start: 20100601
  5. FENTANYL-25 [Suspect]
     Indication: SPINAL COLUMN STENOSIS
     Dosage: 25 MCG/HR Q72H,TDER
     Route: 062
     Dates: start: 20100601
  6. FENTANYL-25 [Suspect]
     Indication: PAIN
     Dosage: 25 MCG/HR Q72H,TDER
     Route: 062
     Dates: start: 20100601
  7. SEVERAL UNSPECIFIED MEDICATIONS [Concomitant]
  8. FENTANYL-75 [Suspect]
     Dosage: TDER
     Route: 062
  9. FENTANYL [Suspect]
     Dosage: TDER
     Route: 062

REACTIONS (4)
  - WRONG TECHNIQUE IN DRUG USAGE PROCESS [None]
  - PRODUCT ADHESION ISSUE [None]
  - CARDIAC FAILURE CONGESTIVE [None]
  - APPLICATION SITE PRURITUS [None]
